FAERS Safety Report 5947715-1 (Version None)
Quarter: 2008Q4

REPORT INFORMATION
  Report Type: 
  Country: None (occurrence: None)
  Receive Date: 20081110
  Receipt Date: 20081110
  Transmission Date: 20090506
  Serious: No
  Sender: FDA-Public Use
  Company Number: None

PATIENT
  Sex: Female

DRUGS (1)
  1. OXYBUTYNIN CHLORIDE [Suspect]
     Indication: CYSTITIS INTERSTITIAL
     Dosage: 5 MG TID PO
     Route: 048
     Dates: start: 20080807, end: 20080907

REACTIONS (4)
  - MICTURITION URGENCY [None]
  - NOCTURIA [None]
  - THERAPEUTIC RESPONSE DECREASED [None]
  - THERAPEUTIC RESPONSE UNEXPECTED WITH DRUG SUBSTITUTION [None]
